FAERS Safety Report 13078472 (Version 10)
Quarter: 2017Q3

REPORT INFORMATION
  Report Type: Report from Study
  Country: JP (occurrence: JP)
  Receive Date: 20170102
  Receipt Date: 20170809
  Transmission Date: 20171127
  Serious: Yes (Hospitalization, Other)
  Sender: FDA-Public Use
  Company Number: PHHY2013JP083242

PATIENT
  Age: 11 Year
  Sex: Female

DRUGS (65)
  1. CERTICAN [Suspect]
     Active Substance: EVEROLIMUS
     Dosage: 1.5 MG, QD
     Route: 048
     Dates: start: 20111019, end: 20111026
  2. CERTICAN [Suspect]
     Active Substance: EVEROLIMUS
     Dosage: 1.75 MG, QD
     Route: 048
     Dates: start: 20111118, end: 20111120
  3. TACROLIMUS. [Suspect]
     Active Substance: TACROLIMUS
     Indication: IMMUNOSUPPRESSANT DRUG THERAPY
     Dosage: 6 MG, QD
     Route: 048
     Dates: start: 20111019, end: 20111022
  4. TACROLIMUS. [Suspect]
     Active Substance: TACROLIMUS
     Dosage: 1.4 MG, QD
     Route: 048
     Dates: start: 20111029, end: 20111031
  5. TACROLIMUS. [Suspect]
     Active Substance: TACROLIMUS
     Dosage: 3.6 MG, QD
     Route: 048
     Dates: start: 20111112, end: 20111112
  6. PREDONINE [Suspect]
     Active Substance: PREDNISOLONE
     Dosage: 5 MG, UNK
     Route: 048
     Dates: start: 20150722, end: 20151216
  7. PROGRAF [Suspect]
     Active Substance: TACROLIMUS\TACROLIMUS ANHYDROUS
     Dosage: 4 MG, UNK
     Route: 048
     Dates: start: 20140715
  8. GRACEPTOR [Suspect]
     Active Substance: TACROLIMUS
     Dosage: 5 MG, UNK
     Route: 048
     Dates: start: 20160825, end: 20170125
  9. MYCOPHENOLATE MOFETIL. [Concomitant]
     Active Substance: MYCOPHENOLATE MOFETIL
     Indication: HEART TRANSPLANT
     Dosage: 500 MG, UNK
     Route: 048
     Dates: start: 20150617, end: 20160314
  10. CERTICAN [Suspect]
     Active Substance: EVEROLIMUS
     Dosage: 1.25 MG, QD
     Route: 048
     Dates: start: 20111027, end: 20111030
  11. CERTICAN [Suspect]
     Active Substance: EVEROLIMUS
     Dosage: 1.5 MG, QD
     Route: 048
     Dates: start: 20111105, end: 20111117
  12. CERTICAN [Suspect]
     Active Substance: EVEROLIMUS
     Dosage: 2.75 MG, UNK
     Route: 048
     Dates: start: 20131211, end: 20140216
  13. CERTICAN [Suspect]
     Active Substance: EVEROLIMUS
     Dosage: 1.75 MG, QD
     Route: 048
     Dates: start: 20140529, end: 20140707
  14. TACROLIMUS. [Suspect]
     Active Substance: TACROLIMUS
     Indication: HEART TRANSPLANT
     Dosage: 7.2 MG, QD
     Route: 048
     Dates: end: 20111018
  15. TACROLIMUS. [Suspect]
     Active Substance: TACROLIMUS
     Dosage: 3 MG, UNK
     Route: 048
     Dates: start: 20160121, end: 20160508
  16. PREDONINE [Suspect]
     Active Substance: PREDNISOLONE
     Indication: HEART TRANSPLANT
     Dosage: 5 MG, QD
     Route: 048
     Dates: start: 20111022, end: 20111118
  17. PROGRAF [Suspect]
     Active Substance: TACROLIMUS\TACROLIMUS ANHYDROUS
     Dosage: 3 MG, UNK
     Route: 048
     Dates: start: 20140705, end: 20140714
  18. PROGRAF [Suspect]
     Active Substance: TACROLIMUS\TACROLIMUS ANHYDROUS
     Dosage: 7 MG, UNK
     Route: 048
     Dates: start: 20141027, end: 20150623
  19. PROGRAF [Suspect]
     Active Substance: TACROLIMUS\TACROLIMUS ANHYDROUS
     Dosage: 4 MG, UNK
     Route: 048
     Dates: start: 20150730, end: 20151216
  20. PREDNISOLONE. [Concomitant]
     Active Substance: PREDNISOLONE
     Indication: HEART TRANSPLANT
     Dosage: 2 MG, UNK
     Route: 048
     Dates: start: 20151217, end: 20160606
  21. TACROLIMUS. [Suspect]
     Active Substance: TACROLIMUS
     Dosage: 3 MG, QD
     Route: 048
     Dates: start: 20111114, end: 20111120
  22. TACROLIMUS. [Suspect]
     Active Substance: TACROLIMUS
     Dosage: 3.7 MG, QD
     Route: 048
     Dates: start: 20111213
  23. PREDONINE [Suspect]
     Active Substance: PREDNISOLONE
     Dosage: 5 MG, QD
     Route: 048
     Dates: start: 20111217
  24. CELLCEPT [Suspect]
     Active Substance: MYCOPHENOLATE MOFETIL\MYCOPHENOLATE MOFETIL HYDROCHLORIDE
     Indication: HEART TRANSPLANT
     Dosage: 1000 MG, UNK
     Route: 048
     Dates: start: 20140519, end: 20140707
  25. PROGRAF [Suspect]
     Active Substance: TACROLIMUS\TACROLIMUS ANHYDROUS
     Indication: HEART TRANSPLANT
     Dosage: 2.0 MG, UNK
     Route: 048
     Dates: start: 20140702, end: 20140703
  26. CERTICAN [Suspect]
     Active Substance: EVEROLIMUS
     Indication: IMMUNOSUPPRESSANT DRUG THERAPY
     Dosage: 1 MG, QD
     Route: 048
     Dates: start: 20111015, end: 20111018
  27. CERTICAN [Suspect]
     Active Substance: EVEROLIMUS
     Dosage: 1 MG, UNK
     Route: 048
     Dates: start: 20140217, end: 20140327
  28. CERTICAN [Suspect]
     Active Substance: EVEROLIMUS
     Dosage: 2 MG, QD
     Route: 048
     Dates: start: 20140508, end: 20140528
  29. TACROLIMUS. [Suspect]
     Active Substance: TACROLIMUS
     Dosage: 2.6 MG, QD
     Route: 048
     Dates: start: 20111101, end: 20111101
  30. TACROLIMUS. [Suspect]
     Active Substance: TACROLIMUS
     Dosage: 4.5 MG, QD
     Route: 048
     Dates: start: 20111212, end: 20111212
  31. TACROLIMUS. [Suspect]
     Active Substance: TACROLIMUS
     Dosage: 2.8 MG, UNK
     Route: 048
     Dates: start: 20160511, end: 20160813
  32. PREDONINE [Suspect]
     Active Substance: PREDNISOLONE
     Dosage: 3 MG, UNK
     Route: 048
     Dates: start: 20150701
  33. PROGRAF [Suspect]
     Active Substance: TACROLIMUS\TACROLIMUS ANHYDROUS
     Dosage: 2.4 MG, UNK
     Route: 048
     Dates: start: 20160509, end: 20160510
  34. TACROLIMUS. [Suspect]
     Active Substance: TACROLIMUS
     Dosage: 3.2 MG, QD
     Route: 048
     Dates: start: 20111106, end: 20111106
  35. TACROLIMUS. [Suspect]
     Active Substance: TACROLIMUS
     Dosage: 3.2 MG, QD
     Route: 048
     Dates: start: 20111125, end: 20111208
  36. TACROLIMUS. [Suspect]
     Active Substance: TACROLIMUS
     Dosage: 3.4 MG, QD
     Route: 048
     Dates: start: 20111209, end: 20111210
  37. TACROLIMUS. [Suspect]
     Active Substance: TACROLIMUS
     Dosage: 4 MG, UNK
     Route: 048
     Dates: start: 20150730, end: 20151216
  38. PREDONINE [Suspect]
     Active Substance: PREDNISOLONE
     Dosage: 2.5 MG, UNK
     Route: 048
     Dates: start: 20130501, end: 20150623
  39. PROGRAF [Suspect]
     Active Substance: TACROLIMUS\TACROLIMUS ANHYDROUS
     Dosage: 8 MG, UNK
     Route: 048
     Dates: start: 20150629, end: 20150726
  40. PROGRAF [Suspect]
     Active Substance: TACROLIMUS\TACROLIMUS ANHYDROUS
     Dosage: 3.5 MG, UNK
     Route: 048
     Dates: start: 20151217, end: 20160120
  41. CERTICAN [Suspect]
     Active Substance: EVEROLIMUS
     Dosage: 1.75 MG, UNK
     Route: 048
     Dates: start: 20140328, end: 20140507
  42. TACROLIMUS. [Suspect]
     Active Substance: TACROLIMUS
     Dosage: 1.6 MG, QD
     Route: 048
     Dates: start: 20111026, end: 20111028
  43. TACROLIMUS. [Suspect]
     Active Substance: TACROLIMUS
     Dosage: 3 MG, QD
     Route: 048
     Dates: start: 20111107, end: 20111111
  44. TACROLIMUS. [Suspect]
     Active Substance: TACROLIMUS
     Dosage: 3.5 MG, UNK
     Route: 048
     Dates: start: 20151217, end: 20160120
  45. TACROLIMUS. [Suspect]
     Active Substance: TACROLIMUS
     Dosage: 2.4 MG, UNK
     Route: 048
     Dates: start: 20160509, end: 20160510
  46. PREDONINE [Suspect]
     Active Substance: PREDNISOLONE
     Dosage: 2.5 MG, QD
     Route: 048
     Dates: start: 20111119, end: 20111216
  47. PROGRAF [Suspect]
     Active Substance: TACROLIMUS\TACROLIMUS ANHYDROUS
     Dosage: 2.8 MG, UNK
     Route: 048
     Dates: start: 20160511, end: 20160813
  48. CERTICAN [Suspect]
     Active Substance: EVEROLIMUS
     Dosage: 1.75 MG, QD
     Route: 048
     Dates: start: 20111124, end: 20111207
  49. CERTICAN [Suspect]
     Active Substance: EVEROLIMUS
     Dosage: 1.5 MG, QD
     Route: 048
     Dates: start: 20111208
  50. CERTICAN [Suspect]
     Active Substance: EVEROLIMUS
     Dosage: 1.5 MG, QD
     Route: 048
     Dates: start: 20140708, end: 20150504
  51. TACROLIMUS. [Suspect]
     Active Substance: TACROLIMUS
     Dosage: 2.8 MG, QD
     Route: 048
     Dates: start: 20111113, end: 20111113
  52. TACROLIMUS. [Suspect]
     Active Substance: TACROLIMUS
     Dosage: 3.7 MG, QD
     Route: 048
     Dates: start: 20111211, end: 20111211
  53. PROGRAF [Suspect]
     Active Substance: TACROLIMUS\TACROLIMUS ANHYDROUS
     Dosage: 6 MG, UNK
     Route: 048
     Dates: start: 20150727, end: 20150729
  54. CERTICAN [Suspect]
     Active Substance: EVEROLIMUS
     Indication: HEART TRANSPLANT
     Dosage: 0.5 MG, QD
     Route: 048
     Dates: start: 20111010, end: 20111014
  55. CERTICAN [Suspect]
     Active Substance: EVEROLIMUS
     Dosage: 1.5 MG, QD
     Route: 048
     Dates: start: 20111031, end: 20111101
  56. CERTICAN [Suspect]
     Active Substance: EVEROLIMUS
     Dosage: 2 MG, QD
     Route: 048
     Dates: start: 20111121, end: 20111123
  57. CERTICAN [Suspect]
     Active Substance: EVEROLIMUS
     Dosage: 3.25 MG, UNK
     Route: 048
     Dates: start: 20130424, end: 20131210
  58. CERTICAN [Suspect]
     Active Substance: EVEROLIMUS
     Dosage: 2 MG, QD
     Route: 048
     Dates: start: 20150505
  59. TACROLIMUS. [Suspect]
     Active Substance: TACROLIMUS
     Dosage: 2.8 MG, QD
     Route: 048
     Dates: start: 20111102, end: 20111102
  60. TACROLIMUS. [Suspect]
     Active Substance: TACROLIMUS
     Dosage: 3 MG, QD
     Route: 048
     Dates: start: 20111103, end: 20111105
  61. TACROLIMUS. [Suspect]
     Active Substance: TACROLIMUS
     Dosage: 3.3 MG, QD
     Route: 048
     Dates: start: 20111121, end: 20111121
  62. TACROLIMUS. [Suspect]
     Active Substance: TACROLIMUS
     Dosage: 3.4 MG, QD
     Route: 048
     Dates: start: 20111122, end: 20111124
  63. PROGRAF [Suspect]
     Active Substance: TACROLIMUS\TACROLIMUS ANHYDROUS
     Dosage: 2.5 MG, UNK
     Route: 048
     Dates: start: 20140704, end: 20140704
  64. PROGRAF [Suspect]
     Active Substance: TACROLIMUS\TACROLIMUS ANHYDROUS
     Dosage: 3 MG, UNK
     Route: 048
     Dates: start: 20160121, end: 20160508
  65. GRACEPTOR [Suspect]
     Active Substance: TACROLIMUS
     Indication: HEART TRANSPLANT
     Dosage: 3.5 MG, UNK
     Route: 048
     Dates: start: 20160814, end: 20160824

REACTIONS (27)
  - Renal impairment [Recovered/Resolved]
  - Chronic kidney disease [Unknown]
  - Gastroenteritis [Recovered/Resolved]
  - Blood triglycerides increased [Unknown]
  - Bradycardia [Recovered/Resolved]
  - Blood lactate dehydrogenase increased [Unknown]
  - Pyrexia [Unknown]
  - Alanine aminotransferase increased [Unknown]
  - Gamma-glutamyltransferase increased [Unknown]
  - Immunosuppressant drug level increased [Unknown]
  - Enterocolitis [Recovering/Resolving]
  - Diarrhoea [Unknown]
  - Lymphocytic infiltration [Unknown]
  - C-reactive protein increased [Unknown]
  - Vomiting [Unknown]
  - Epstein-Barr virus infection [Not Recovered/Not Resolved]
  - Aspartate aminotransferase increased [Unknown]
  - Malaise [Unknown]
  - Hepatic function abnormal [Unknown]
  - Blood urea increased [Unknown]
  - Glomerulosclerosis [Unknown]
  - Kidney fibrosis [Unknown]
  - Blood alkaline phosphatase increased [Unknown]
  - Drug level increased [Recovered/Resolved]
  - Infection [Unknown]
  - Neutrophil count increased [Unknown]
  - Lymphocyte count decreased [Unknown]

NARRATIVE: CASE EVENT DATE: 20111028
